FAERS Safety Report 16129995 (Version 1)
Quarter: 2019Q1

REPORT INFORMATION
  Report Type: Report from Study
  Country: US (occurrence: US)
  Receive Date: 20190328
  Receipt Date: 20190328
  Transmission Date: 20190418
  Serious: Yes (Hospitalization, Other)
  Sender: FDA-Public Use
  Company Number: US-JNJFOC-20190217681

PATIENT
  Sex: Male

DRUGS (14)
  1. MELATONIN [Concomitant]
     Active Substance: MELATONIN
  2. ELEUTHEROCOCCUS SENTICOSUS ROOT EXTRACT [Concomitant]
  3. IMBRUVICA [Suspect]
     Active Substance: IBRUTINIB
     Indication: CHRONIC LYMPHOCYTIC LEUKAEMIA
     Dosage: 420 MG, QD
     Route: 048
     Dates: start: 20180501, end: 20180605
  4. IMBRUVICA [Suspect]
     Active Substance: IBRUTINIB
     Indication: CHRONIC LYMPHOCYTIC LEUKAEMIA
     Route: 048
     Dates: start: 20171205, end: 20180430
  5. VITAMIN D3 [Concomitant]
     Active Substance: CHOLECALCIFEROL
  6. VITAMIN D [Concomitant]
     Active Substance: CHOLECALCIFEROL
  7. IMBRUVICA [Suspect]
     Active Substance: IBRUTINIB
     Indication: CHRONIC LYMPHOCYTIC LEUKAEMIA
     Route: 048
     Dates: start: 20180606, end: 20190108
  8. MINERAL OIL. [Concomitant]
     Active Substance: MINERAL OIL
  9. LITHIUM CITRATE. [Concomitant]
     Active Substance: LITHIUM CITRATE
  10. AMINO ACID [Concomitant]
     Active Substance: AMINO ACIDS
  11. IMBRUVICA [Suspect]
     Active Substance: IBRUTINIB
     Indication: CHRONIC LYMPHOCYTIC LEUKAEMIA
     Route: 048
     Dates: start: 20190109
  12. BUPROPION. [Concomitant]
     Active Substance: BUPROPION
  13. CEFALEXIN [Concomitant]
     Active Substance: CEPHALEXIN
  14. IMBRUVICA [Suspect]
     Active Substance: IBRUTINIB
     Indication: CHRONIC LYMPHOCYTIC LEUKAEMIA
     Route: 048
     Dates: start: 20171207, end: 20180430

REACTIONS (8)
  - Head injury [Unknown]
  - Feeling abnormal [Unknown]
  - Vomiting [Not Recovered/Not Resolved]
  - Nausea [Unknown]
  - Nasal cavity cancer [Unknown]
  - Skin haemorrhage [Recovered/Resolved]
  - Dizziness [Unknown]
  - Limb discomfort [Unknown]
